FAERS Safety Report 23884587 (Version 2)
Quarter: 2024Q3

REPORT INFORMATION
  Report Type: Report from Study
  Country: US (occurrence: US)
  Receive Date: 20240522
  Receipt Date: 20240730
  Transmission Date: 20241017
  Serious: Yes (Hospitalization)
  Sender: ABBVIE
  Company Number: US-ABBVIE-5769147

PATIENT
  Sex: Male

DRUGS (1)
  1. SKYRIZI [Suspect]
     Active Substance: RISANKIZUMAB-RZAA
     Indication: Crohn^s disease
     Dosage: LAST ADMIN DATE: 2024
     Route: 058
     Dates: start: 20240110

REACTIONS (4)
  - Pneumonia bacterial [Recovered/Resolved]
  - Pneumonia [Unknown]
  - Oxygen saturation decreased [Unknown]
  - Nail discolouration [Unknown]

NARRATIVE: CASE EVENT DATE: 20240101
